FAERS Safety Report 7503754-0 (Version None)
Quarter: 2011Q2

REPORT INFORMATION
  Report Type: 
  Country: None (occurrence: None)
  Receive Date: 20110524
  Receipt Date: 20110524
  Transmission Date: 20111010
  Serious: Yes (Life-Threatening, Hospitalization)
  Sender: FDA-Public Use
  Company Number: None

PATIENT
  Age: 71 Year
  Sex: Male

DRUGS (6)
  1. REGULAR INSULIN [Concomitant]
  2. ENOXAPARIN [Suspect]
     Indication: INTERNATIONAL NORMALISED RATIO DECREASED
     Dosage: 105 MG TWICE DAILY SQ
     Route: 058
     Dates: start: 20110401, end: 20110407
  3. LISINOPRIL [Concomitant]
  4. HYDROCHLOROTHIAZIDE [Concomitant]
  5. JANTOVEN [Suspect]
     Indication: DEEP VEIN THROMBOSIS
     Dosage: 7 MG DAILY PO
     Route: 048
     Dates: start: 20110331, end: 20110407
  6. OLANZAPINE [Concomitant]

REACTIONS (11)
  - BLOOD POTASSIUM INCREASED [None]
  - HAEMOGLOBIN DECREASED [None]
  - RED BLOOD CELL COUNT DECREASED [None]
  - VENOUS INSUFFICIENCY [None]
  - ABDOMINAL WALL HAEMATOMA [None]
  - INTERNATIONAL NORMALISED RATIO DECREASED [None]
  - BLOOD UREA INCREASED [None]
  - TREATMENT NONCOMPLIANCE [None]
  - BLOOD GLUCOSE INCREASED [None]
  - HAEMATOCRIT DECREASED [None]
  - ABDOMINAL PAIN LOWER [None]
